FAERS Safety Report 9299285 (Version 3)
Quarter: 2013Q3

REPORT INFORMATION
  Report Type: Report from Study
  Country: CA (occurrence: CA)
  Receive Date: 20130520
  Receipt Date: 20130702
  Transmission Date: 20140515
  Serious: Yes (Life-Threatening, Hospitalization)
  Sender: FDA-Public Use
  Company Number: CA-SANOFI-AVENTIS-2013SA050186

PATIENT
  Age: 61 Year
  Sex: Male
  Weight: 68.3 kg

DRUGS (8)
  1. ELOXATIN [Suspect]
     Indication: DIABETIC KETOACIDOSIS
     Dates: start: 20130306
  2. INVESTIGATIONAL DRUG [Suspect]
     Dates: start: 20130306
  3. 5-FU [Suspect]
     Dates: start: 20130306
  4. FOLINIC ACID [Suspect]
     Dosage: DOSE: 710
     Dates: start: 20130306
  5. ATENOLOL [Concomitant]
     Dates: start: 201206
  6. CRESTOR [Concomitant]
     Dates: start: 201006
  7. ASA [Concomitant]
     Dates: start: 201006
  8. PANTOLOC [Concomitant]

REACTIONS (1)
  - Diabetic ketoacidosis [Recovered/Resolved]
